FAERS Safety Report 25385692 (Version 1)
Quarter: 2025Q2

REPORT INFORMATION
  Report Type: Spontaneous
  Country: CN (occurrence: CN)
  Receive Date: 20250602
  Receipt Date: 20250602
  Transmission Date: 20250717
  Serious: Yes (Hospitalization)
  Sender: COHERUS
  Company Number: CN-SHANGHAI JUNSHI BIOSCIENCES CO., LTD.-CN2025014278

PATIENT

DRUGS (12)
  1. TORIPALIMAB [Suspect]
     Active Substance: TORIPALIMAB
     Indication: Nasopharyngeal cancer
     Route: 041
     Dates: start: 20241227, end: 20241227
  2. TORIPALIMAB [Suspect]
     Active Substance: TORIPALIMAB
     Route: 041
     Dates: start: 20250119, end: 20250119
  3. TORIPALIMAB [Suspect]
     Active Substance: TORIPALIMAB
     Route: 041
     Dates: start: 20250210, end: 20250210
  4. TORIPALIMAB [Suspect]
     Active Substance: TORIPALIMAB
     Route: 041
     Dates: start: 20250307, end: 20250307
  5. TORIPALIMAB [Suspect]
     Active Substance: TORIPALIMAB
     Route: 041
     Dates: start: 20250402
  6. GEMCITABINE HYDROCHLORIDE [Suspect]
     Active Substance: GEMCITABINE HYDROCHLORIDE
     Indication: Nasopharyngeal cancer
     Route: 041
  7. GEMCITABINE HYDROCHLORIDE [Suspect]
     Active Substance: GEMCITABINE HYDROCHLORIDE
     Route: 041
     Dates: start: 20250402, end: 20250402
  8. CISPLATIN [Suspect]
     Active Substance: CISPLATIN
     Indication: Nasopharyngeal cancer
     Route: 041
  9. CISPLATIN [Suspect]
     Active Substance: CISPLATIN
     Route: 041
     Dates: start: 20250402, end: 20250402
  10. SODIUM CHLORIDE [Concomitant]
     Active Substance: SODIUM CHLORIDE
     Indication: Medication dilution
     Route: 041
     Dates: start: 20250402, end: 20250402
  11. SODIUM CHLORIDE [Concomitant]
     Active Substance: SODIUM CHLORIDE
     Indication: Medication dilution
     Route: 041
     Dates: start: 20250402, end: 20250402
  12. SODIUM CHLORIDE [Concomitant]
     Active Substance: SODIUM CHLORIDE
     Route: 041
     Dates: start: 20250402, end: 20250402

REACTIONS (1)
  - Myelosuppression [Recovering/Resolving]

NARRATIVE: CASE EVENT DATE: 20250328
